FAERS Safety Report 10468943 (Version 2)
Quarter: 2014Q4

REPORT INFORMATION
  Report Type: Spontaneous
  Country: US (occurrence: US)
  Receive Date: 20140923
  Receipt Date: 20141007
  Transmission Date: 20150528
  Serious: No
  Sender: FDA-Public Use
  Company Number: US-SHIRE-US201406103

PATIENT
  Age: 65 Year
  Sex: Female
  Weight: 88.89 kg

DRUGS (6)
  1. LEVOTHYROXINE [Concomitant]
     Active Substance: LEVOTHYROXINE
     Indication: HYPOTHYROIDISM
     Dosage: 100 ?G, 1X/DAY:QD
     Route: 048
  2. FISH OIL [Concomitant]
     Active Substance: FISH OIL
     Indication: NUTRITIONAL SUPPLEMENTATION
     Dosage: UNK, 2X/DAY:BID
     Route: 048
     Dates: start: 2014
  3. VITAMIN D3 [Concomitant]
     Active Substance: CHOLECALCIFEROL
     Indication: NUTRITIONAL SUPPLEMENTATION
     Dosage: 250 IU, 2X/DAY:BID
     Route: 048
     Dates: start: 2014
  4. MESALAMINE. [Concomitant]
     Active Substance: MESALAMINE
     Indication: COLITIS
     Dosage: 4 G, EVERY OTHER DAY
     Route: 054
     Dates: start: 201102
  5. LIALDA [Suspect]
     Active Substance: MESALAMINE
     Indication: COLITIS
     Dosage: 1.2 G, 3X/DAY:TID
     Route: 048
     Dates: start: 201102, end: 20140704
  6. CITRICAL                           /00751501/ [Concomitant]
     Indication: NUTRITIONAL SUPPLEMENTATION
     Dosage: UNK, 4X/DAY:QID
     Route: 048
     Dates: start: 2012

REACTIONS (8)
  - Joint swelling [Recovering/Resolving]
  - Arthropathy [Recovering/Resolving]
  - Bone density decreased [Unknown]
  - Pain [Not Recovered/Not Resolved]
  - Muscle spasms [Recovering/Resolving]
  - Inappropriate schedule of drug administration [Recovered/Resolved]
  - Peripheral swelling [Recovering/Resolving]
  - Cystitis [Recovered/Resolved]

NARRATIVE: CASE EVENT DATE: 201102
